FAERS Safety Report 23487151 (Version 1)
Quarter: 2024Q1

REPORT INFORMATION
  Report Type: Spontaneous
  Country: US (occurrence: US)
  Receive Date: 20240206
  Receipt Date: 20240206
  Transmission Date: 20240409
  Serious: No
  Sender: FDA-Public Use
  Company Number: US-Ipsen Biopharmaceuticals, Inc.-2024-01297

PATIENT
  Age: 20 Year
  Sex: Male

DRUGS (2)
  1. DYSPORT [Suspect]
     Active Substance: ABOBOTULINUMTOXINA
     Indication: Cerebral palsy
     Dosage: 1500U TOTAL BETWEEN 2 LEGS, MUSCLES INJECTED: HIP ADDUCTORS, GRACILIS, HAMSTRINGS AND GASTROC OF BOT
     Route: 065
     Dates: start: 20230112, end: 20230112
  2. BACLOFEN [Concomitant]
     Active Substance: BACLOFEN
     Dosage: 20MG BACLOFEN TID

REACTIONS (2)
  - Muscular weakness [Not Recovered/Not Resolved]
  - Influenza [Unknown]

NARRATIVE: CASE EVENT DATE: 20230101
